FAERS Safety Report 6086209-2 (Version None)
Quarter: 2009Q1

REPORT INFORMATION
  Report Type: 
  Country: None (occurrence: None)
  Receive Date: 20090218
  Receipt Date: 20090218
  Transmission Date: 20090719
  Serious: Yes (Other)
  Sender: FDA-Public Use
  Company Number: None

PATIENT
  Age: 80 Year
  Sex: Female
  Weight: 50.3493 kg

DRUGS (12)
  1. LEVAQUIN IN DEXTROSE 5% [Suspect]
     Indication: PNEUMONIA
     Dosage: 500MG EVERY 24 HOURS IV
     Route: 042
     Dates: start: 20090212, end: 20090214
  2. DIGOXIN [Concomitant]
  3. DILATIAZEM [Concomitant]
  4. MUCINEX [Concomitant]
  5. LANTUS [Concomitant]
  6. REPAGLINIDE [Concomitant]
  7. COUMADIN [Concomitant]
  8. SPIRIONOLACTONE [Concomitant]
  9. MIRALAX [Concomitant]
  10. DUONEBS [Concomitant]
  11. VITAMIN D [Concomitant]
  12. FUROSEMIDE [Concomitant]

REACTIONS (2)
  - DYSKINESIA [None]
  - HYPERKINESIA [None]
